FAERS Safety Report 5976969-0 (Version None)
Quarter: 2008Q4

REPORT INFORMATION
  Report Type: 
  Country: None (occurrence: None)
  Receive Date: 20081203
  Receipt Date: 20080203
  Transmission Date: 20090506
  Serious: Yes (Hospitalization)
  Sender: FDA-Public Use
  Company Number: US-AMGEN-QUU263876

PATIENT
  Sex: Male
  Weight: 68.1 kg

DRUGS (3)
  1. ENBREL [Suspect]
     Indication: RHEUMATOID ARTHRITIS
     Route: 058
     Dates: start: 20040101
  2. METHOTREXATE [Concomitant]
     Route: 058
     Dates: start: 19950101
  3. REMICADE [Concomitant]
     Dates: start: 20060601, end: 20070301

REACTIONS (8)
  - INFLUENZA [None]
  - INJECTION SITE IRRITATION [None]
  - INJECTION SITE PAIN [None]
  - PNEUMONIA [None]
  - PRODUCTIVE COUGH [None]
  - RESPIRATORY TRACT INFECTION [None]
  - RHINORRHOEA [None]
  - SPUTUM DISCOLOURED [None]
